FAERS Safety Report 18398312 (Version 1)
Quarter: 2020Q4

REPORT INFORMATION
  Report Type: Spontaneous
  Country: US (occurrence: US)
  Receive Date: 20201019
  Receipt Date: 20201019
  Transmission Date: 20210114
  Serious: No
  Sender: FDA-Public Use
  Company Number: US-SA-2018SA134190

PATIENT

DRUGS (2)
  1. DUPIXENT [Suspect]
     Active Substance: DUPILUMAB
     Indication: DERMATITIS ATOPIC
  2. DUPIXENT [Suspect]
     Active Substance: DUPILUMAB
     Indication: IDIOPATHIC URTICARIA
     Dosage: 300 MG,QOW
     Route: 058
     Dates: start: 20170606

REACTIONS (10)
  - Eye pruritus [Unknown]
  - Lacrimation increased [Unknown]
  - Product use in unapproved indication [Unknown]
  - Erythema [Unknown]
  - Eye allergy [Unknown]
  - Photophobia [Unknown]
  - Eye swelling [Unknown]
  - Ocular hyperaemia [Unknown]
  - Oral herpes [Unknown]
  - Dry eye [Unknown]
